FAERS Safety Report 21978660 (Version 2)
Quarter: 2023Q1

REPORT INFORMATION
  Report Type: Spontaneous
  Country: US (occurrence: US)
  Receive Date: 20230210
  Receipt Date: 20230308
  Transmission Date: 20230417
  Serious: Yes (Life-Threatening, Hospitalization)
  Sender: FDA-Public Use
  Company Number: US-BoehringerIngelheim-2023-BI-217911

PATIENT
  Age: 86 Year
  Sex: Female

DRUGS (3)
  1. JARDIANCE [Suspect]
     Active Substance: EMPAGLIFLOZIN
     Indication: Type 2 diabetes mellitus
     Dates: start: 202210, end: 20230117
  2. TRIAMCINOLONE [Suspect]
     Active Substance: TRIAMCINOLONE
     Indication: Perineal pain
  3. TRIAMCINOLONE [Suspect]
     Active Substance: TRIAMCINOLONE
     Indication: Perineal erythema

REACTIONS (9)
  - Road traffic accident [Recovered/Resolved]
  - Rib fracture [Recovering/Resolving]
  - Ankle fracture [Recovering/Resolving]
  - Contusion [Recovering/Resolving]
  - Pain in extremity [Recovering/Resolving]
  - Weight decreased [Recovered/Resolved]
  - Perineal pain [Recovering/Resolving]
  - Perineal erythema [Recovering/Resolving]
  - Perineal ulceration [Recovering/Resolving]

NARRATIVE: CASE EVENT DATE: 20221001
